FAERS Safety Report 6305137-8 (Version None)
Quarter: 2009Q3

REPORT INFORMATION
  Report Type: 
  Country: None (occurrence: None)
  Receive Date: 20090811
  Receipt Date: 20090807
  Transmission Date: 20100115
  Serious: Yes (Hospitalization)
  Sender: FDA-Public Use
  Company Number: SE-BAYER-200927696GPV

PATIENT
  Age: 27 Year
  Sex: Female

DRUGS (2)
  1. CIPROFLOXACIN HCL [Suspect]
     Indication: PYELONEPHRITIS
     Dosage: UNIT DOSE: 500 MG
     Route: 048
     Dates: start: 20090526, end: 20090527
  2. VOLTAREN [Concomitant]
     Indication: PYELONEPHRITIS
     Dosage: GASTRO RESISTENT TABLET
     Route: 065

REACTIONS (4)
  - CONNECTIVE TISSUE DISORDER [None]
  - MUSCULOSKELETAL DISORDER [None]
  - MYALGIA [None]
  - PAIN IN EXTREMITY [None]
